FAERS Safety Report 5066759-8 (Version None)
Quarter: 2006Q3

REPORT INFORMATION
  Report Type: 
  Country: None (occurrence: None)
  Receive Date: 20060710
  Receipt Date: 20050831
  Transmission Date: 20061208
  Serious: Yes (Other)
  Sender: FDA-Public Use
  Company Number: US-2005-018413

PATIENT
  Age: 17 Year
  Sex: Male
  Weight: 49.9 kg

DRUGS (1)
  1. ULTRAVIST 300 [Suspect]
     Indication: COMPUTERISED TOMOGRAM ABDOMEN
     Dosage: 100 ML, 1 DOSE, INTRAVENOUS
     Route: 042
     Dates: start: 20050824, end: 20050824

REACTIONS (4)
  - DYSPNOEA [None]
  - ERYTHEMA [None]
  - NASAL CONGESTION [None]
  - RASH [None]
